FAERS Safety Report 4286994-6 (Version None)
Quarter: 2004Q1

REPORT INFORMATION
  Report Type: 
  Country: None (occurrence: None)
  Receive Date: 20040204
  Receipt Date: 20040119
  Transmission Date: 20041129
  Serious: Yes (Hospitalization)
  Sender: FDA-Public Use
  Company Number: 2004AP00447

PATIENT
  Age: 72 Year
  Sex: Female
  Weight: 57.8 kg

DRUGS (8)
  1. PULMICORT [Suspect]
     Indication: ASTHMA
     Dosage: 600 UG DAILY IH
     Route: 055
     Dates: start: 20031125, end: 20031212
  2. PULMICORT [Suspect]
     Indication: ASTHMA
     Dosage: 200 UG DAILY IH
     Route: 055
     Dates: start: 20031215
  3. SIGMART [Concomitant]
  4. THEO-DUR [Concomitant]
  5. SINGULAIR ^DIECKMANN^ [Concomitant]
  6. MEPTIN [Concomitant]
  7. DIPYRIDAMOLE [Concomitant]
  8. FRANDOL [Concomitant]

REACTIONS (4)
  - ASTHMA [None]
  - BACTERIAL INFECTION [None]
  - PNEUMONIA [None]
  - STOMATITIS [None]
